FAERS Safety Report 5099631-8 (Version None)
Quarter: 2006Q3

REPORT INFORMATION
  Report Type: 
  Country: None (occurrence: None)
  Receive Date: 20060906
  Receipt Date: 20060822
  Transmission Date: 20061208
  Serious: Yes (Hospitalization)
  Sender: FDA-Public Use
  Company Number: 2006BI011893

PATIENT
  Age: 33 Year
  Sex: Female
  Weight: 108.8633 kg

DRUGS (6)
  1. AVONEX [Suspect]
     Indication: MULTIPLE SCLEROSIS
     Dosage: 30 UG;QW;IM
     Route: 030
     Dates: start: 20060525
  2. LEXAPRO [Concomitant]
  3. ZYPREXA [Concomitant]
  4. CYMBALTA [Concomitant]
  5. NAPROXEN [Concomitant]
  6. FLEXERIL [Concomitant]

REACTIONS (2)
  - CONFUSIONAL STATE [None]
  - HEADACHE [None]
